FAERS Safety Report 5458505-0 (Version None)
Quarter: 2007Q3

REPORT INFORMATION
  Report Type: 
  Country: None (occurrence: None)
  Receive Date: 20070919
  Receipt Date: 20070502
  Transmission Date: 20080115
  Serious: Yes (Other)
  Sender: FDA-Public Use
  Company Number: US-ASTRAZENECA-2007UW06154

PATIENT
  Age: 21781 Day
  Sex: Female

DRUGS (7)
  1. SEROQUEL [Suspect]
     Indication: BIPOLAR DISORDER
     Dosage: 100 MG TO 200 MG
     Route: 048
     Dates: start: 20021119, end: 20040607
  2. SEROQUEL [Suspect]
     Indication: DEPRESSION
     Dosage: 100 MG TO 200 MG
     Route: 048
     Dates: start: 20021119, end: 20040607
  3. SEROQUEL [Suspect]
     Route: 048
     Dates: start: 20040608, end: 20060413
  4. SEROQUEL [Suspect]
     Route: 048
     Dates: start: 20040608, end: 20060413
  5. RISPERDAL [Suspect]
     Indication: BIPOLAR DISORDER
     Dosage: .5 MG TO 1 MG
     Dates: start: 19990629, end: 20020425
  6. RISPERDAL [Suspect]
     Indication: DEPRESSION
     Dosage: .5 MG TO 1 MG
     Dates: start: 19990629, end: 20020425
  7. ABILIFY [Concomitant]

REACTIONS (2)
  - PANCREATITIS ACUTE [None]
  - TYPE 2 DIABETES MELLITUS [None]
